FAERS Safety Report 8418813-8 (Version None)
Quarter: 2012Q2

REPORT INFORMATION
  Report Type: 
  Country: None (occurrence: None)
  Receive Date: 20120607
  Receipt Date: 20120606
  Transmission Date: 20120825
  Serious: Yes (Death)
  Sender: FDA-Public Use
  Company Number: US-PFIZER INC-2008153662

PATIENT
  Age: 51 Year
  Sex: Male

DRUGS (3)
  1. SOTALOL [Suspect]
  2. DIAZEPAM [Suspect]
  3. VERAPAMIL HCL [Suspect]
     Route: 048

REACTIONS (1)
  - COMPLETED SUICIDE [None]
